FAERS Safety Report 5260908-4 (Version None)
Quarter: 2007Q1

REPORT INFORMATION
  Report Type: 
  Country: None (occurrence: None)
  Receive Date: 20070309
  Receipt Date: 20070228
  Transmission Date: 20070707
  Serious: Yes (Hospitalization)
  Sender: FDA-Public Use
  Company Number: US-ROCHE-484709

PATIENT
  Age: 57 Year
  Sex: Female

DRUGS (13)
  1. ORLISTAT [Suspect]
     Indication: DRUG USE FOR UNKNOWN INDICATION
     Dosage: TAKEN WITH MEALS. INCREASED TO THIS DOSE 2 MONTHS PRIOR TO EVENT.
     Route: 065
  2. ORLISTAT [Suspect]
     Route: 065
  3. FUROSEMIDE [Suspect]
     Indication: DRUG USE FOR UNKNOWN INDICATION
     Route: 065
  4. DILTIAZEM [Concomitant]
  5. SINGULAIR [Concomitant]
  6. PANTOPRAZOLE SODIUM [Concomitant]
  7. PAROXETINE HCL [Concomitant]
  8. ALPRAZOLAM [Concomitant]
  9. 1 CONCOMITANT DRUG [Concomitant]
     Dosage: DRUG NAME: ^GLIMEPERIDE^.
  10. ATROVENT [Concomitant]
     Dosage: FORM: PUFF.
  11. COLCHICINE [Concomitant]
  12. CALCITRIOL [Concomitant]
  13. LEVOTHYROXINE SODIUM [Concomitant]

REACTIONS (1)
  - NEPHROPATHY [None]
